FAERS Safety Report 19379758 (Version 1)
Quarter: 2021Q2

REPORT INFORMATION
  Report Type: Spontaneous
  Country: US (occurrence: US)
  Receive Date: 20210607
  Receipt Date: 20210607
  Transmission Date: 20210717
  Serious: No
  Sender: FDA-Public Use
  Company Number: US-SA-2021SA186430

PATIENT
  Sex: Female

DRUGS (4)
  1. BUDESONIDE. [Concomitant]
     Active Substance: BUDESONIDE
  2. DALIRESP [Concomitant]
     Active Substance: ROFLUMILAST
  3. NUCALA [Concomitant]
     Active Substance: MEPOLIZUMAB
  4. DUPIXENT [Suspect]
     Active Substance: DUPILUMAB
     Route: 058
     Dates: start: 20191007

REACTIONS (1)
  - Dyspnoea [Unknown]
